FAERS Safety Report 5385229-0 (Version None)
Quarter: 2007Q3

REPORT INFORMATION
  Report Type: 
  Country: None (occurrence: None)
  Receive Date: 20070706
  Receipt Date: 20070706
  Transmission Date: 20080115
  Serious: Yes (Life-Threatening)
  Sender: FDA-Public Use
  Company Number: None

PATIENT
  Age: 71 Year
  Sex: Male
  Weight: 74.8435 kg

DRUGS (1)
  1. LUNESTA [Suspect]
     Indication: INSOMNIA
     Dosage: 3 MG PER DAY PO
     Route: 048
     Dates: start: 20061210, end: 20070616

REACTIONS (8)
  - AGITATION [None]
  - ASTHENIA [None]
  - CELLULITIS [None]
  - DEPRESSION [None]
  - DRUG EFFECT DECREASED [None]
  - PHARMACEUTICAL PRODUCT COMPLAINT [None]
  - SLEEP DISORDER [None]
  - SUICIDAL IDEATION [None]
